FAERS Safety Report 14987320 (Version 1)
Quarter: 2018Q2

REPORT INFORMATION
  Report Type: Spontaneous
  Country: US (occurrence: US)
  Receive Date: 20180518
  Receipt Date: 20180518
  Transmission Date: 20180711
  Serious: Yes (Death)
  Sender: FDA-Public Use
  Company Number: None

PATIENT
  Age: 59 Year
  Sex: Female

DRUGS (8)
  1. ARMOUR THYROID [Concomitant]
     Active Substance: THYROID, PORCINE
  2. ELIQUIS [Concomitant]
     Active Substance: APIXABAN
  3. CLONAZEPAM 1 MG [Concomitant]
     Active Substance: CLONAZEPAM
  4. POTASSIUM CL 10% SOLUTION [Concomitant]
  5. CAPECITABINE. [Suspect]
     Active Substance: CAPECITABINE
     Indication: PRODUCT USED FOR UNKNOWN INDICATION
     Route: 048
     Dates: start: 20180123
  6. CREON 12,000 UNIT [Concomitant]
  7. OXYCODONE/APAP 7.5/325 [Concomitant]
     Active Substance: ACETAMINOPHEN\OXYCODONE HYDROCHLORIDE
  8. NORETHINDRONE 5MG [Concomitant]
     Active Substance: NORETHINDRONE

REACTIONS (1)
  - Death [None]

NARRATIVE: CASE EVENT DATE: 20180315
